FAERS Safety Report 4499632-4 (Version None)
Quarter: 2004Q4

REPORT INFORMATION
  Report Type: 
  Country: None (occurrence: None)
  Receive Date: 20040928
  Receipt Date: 20040823
  Transmission Date: 20050328
  Serious: No
  Sender: FDA-Public Use
  Company Number: 04P-163-0271227-00

PATIENT
  Age: 83 Year
  Sex: Female

DRUGS (6)
  1. HUMIRA [Suspect]
     Indication: RHEUMATOID ARTHRITIS
     Dosage: 40 MG, 1 IN 2 WK, SUBCUTANEOUS
     Route: 058
     Dates: start: 20040712, end: 20040810
  2. HALQUINOL [Concomitant]
  3. NISOLDIPINE [Concomitant]
  4. MULTI-VITAMINS [Concomitant]
  5. COSAMIN DS [Concomitant]
  6. FISH OIL [Concomitant]

REACTIONS (1)
  - OEDEMA PERIPHERAL [None]
